FAERS Safety Report 9116891 (Version 19)
Quarter: 2014Q1

REPORT INFORMATION
  Report Type: Spontaneous
  Country: US (occurrence: US)
  Receive Date: 20130225
  Receipt Date: 20140203
  Transmission Date: 20141002
  Serious: Yes (Life-Threatening, Hospitalization, Other)
  Sender: FDA-Public Use
  Company Number: PHEH2005US014212

PATIENT
  Age: 39 Year
  Sex: Male
  Weight: 78.45 kg

DRUGS (41)
  1. ZOMETA [Suspect]
     Indication: PLASMA CELL MYELOMA
     Route: 042
  2. ZOMETA [Suspect]
     Indication: METASTASES TO BONE
  3. ZOMETA [Suspect]
     Indication: HYPERCALCAEMIA
  4. CIPROFLOXACIN [Suspect]
  5. VINCRISTINE + ADRIAMYCIN + DEXAMETHASONE [Concomitant]
     Indication: PLASMA CELL MYELOMA
  6. MELPHALAN [Concomitant]
     Indication: PLASMA CELL MYELOMA
  7. WELLBUTRIN [Concomitant]
     Indication: DEPRESSION
  8. NEXIUM [Concomitant]
  9. SYNTHROID [Concomitant]
     Indication: HYPOTHYROIDISM
  10. LOPRESSOR [Concomitant]
     Indication: HYPERTENSION
  11. VALTREX [Concomitant]
  12. PERCOCET [Concomitant]
  13. NEURONTIN [Concomitant]
  14. ATIVAN [Concomitant]
  15. MARIJUANA [Concomitant]
  16. ZOLOFT [Concomitant]
  17. FLOMAX [Concomitant]
  18. LUNESTA [Concomitant]
  19. PROTONIX [Concomitant]
  20. DURAGESIC [Concomitant]
  21. EFFEXOR [Concomitant]
  22. METHADONE [Concomitant]
  23. ZOLOFT (SERTRALINE HYDROCHLORIDE) [Concomitant]
  24. VALIUM [Concomitant]
  25. MAALOX                                  /USA/ [Concomitant]
  26. BENADRYL ^ACHE^ [Concomitant]
  27. COMPAZINE [Concomitant]
  28. AMBIEN [Concomitant]
  29. PHENERGAN ^MAY + BAKER^ [Concomitant]
  30. VIOXX [Concomitant]
  31. LIDOCAINE [Concomitant]
  32. ACIPHEX [Concomitant]
  33. ONDANSETRON [Concomitant]
  34. PROMETHAZINE [Concomitant]
  35. DILAUDID [Concomitant]
  36. ALLOPURINOL [Concomitant]
  37. BACTRIM [Concomitant]
  38. CAPTOPRIL [Concomitant]
  39. CEFEPIME [Concomitant]
  40. SEPTRA [Concomitant]
  41. CHEMOTHERAPEUTICS [Concomitant]

REACTIONS (200)
  - Pneumonia [Recovering/Resolving]
  - Cardiomyopathy [Unknown]
  - Catheterisation cardiac [Unknown]
  - Left ventricular hypertrophy [Unknown]
  - Mitral valve incompetence [Unknown]
  - Ventricular arrhythmia [Unknown]
  - Ventricular tachycardia [Unknown]
  - Cardiac disorder [Unknown]
  - Osteonecrosis of jaw [Unknown]
  - Osteomyelitis [Unknown]
  - Oral disorder [Unknown]
  - Bone disorder [Unknown]
  - Pain in jaw [Unknown]
  - Periodontitis [Recovered/Resolved]
  - Dental caries [Recovered/Resolved]
  - General physical health deterioration [Unknown]
  - Decreased interest [Unknown]
  - Anxiety [Unknown]
  - Mental status changes [Unknown]
  - Hallucination [Unknown]
  - Drug abuse [Unknown]
  - Drug screen positive [Unknown]
  - Mental disorder [Unknown]
  - Cyst [Unknown]
  - Musculoskeletal discomfort [Unknown]
  - Prostatitis [Unknown]
  - Headache [Unknown]
  - Pyrexia [Recovered/Resolved]
  - Impaired healing [Unknown]
  - Wound dehiscence [Unknown]
  - Denture wearer [Unknown]
  - Mouth ulceration [Unknown]
  - Bone swelling [Unknown]
  - Cellulitis [Unknown]
  - Primary sequestrum [Unknown]
  - Abscess jaw [Unknown]
  - Convulsion [Unknown]
  - Ataxia [Unknown]
  - Flushing [Unknown]
  - Excoriation [Unknown]
  - Rhinitis [Unknown]
  - Productive cough [Unknown]
  - Upper-airway cough syndrome [Unknown]
  - Nasal congestion [Unknown]
  - Depression [Unknown]
  - Decubitus ulcer [Unknown]
  - Bone lesion [Unknown]
  - Device breakage [Unknown]
  - Platelet count decreased [Unknown]
  - Red blood cell count decreased [Unknown]
  - Haemoglobin decreased [Unknown]
  - Haematocrit decreased [Unknown]
  - White blood cell count increased [Unknown]
  - Blood immunoglobulin G increased [Unknown]
  - Blood alkaline phosphatase increased [Unknown]
  - Cardiomegaly [Unknown]
  - Lung disorder [Unknown]
  - Urinary retention [Unknown]
  - Erectile dysfunction [Unknown]
  - Libido decreased [Unknown]
  - Penile pain [Unknown]
  - Penis disorder [Unknown]
  - Peyronie^s disease [Unknown]
  - Hypoglycaemia [Unknown]
  - Osteolysis [Unknown]
  - Osteonecrosis [Unknown]
  - Temporomandibular joint syndrome [Unknown]
  - Influenza like illness [Unknown]
  - Rib fracture [Unknown]
  - Back pain [Not Recovered/Not Resolved]
  - Arthritis [Unknown]
  - Disability [Unknown]
  - Marrow hyperplasia [Unknown]
  - Plasmacytosis [Unknown]
  - Left ventricular dysfunction [Unknown]
  - Arrhythmia [Unknown]
  - Inflammation [Unknown]
  - Bacterial disease carrier [Unknown]
  - Overweight [Unknown]
  - Facial pain [Unknown]
  - Pain [Unknown]
  - Radiculopathy [Unknown]
  - Pain in extremity [Unknown]
  - Diabetic neuropathy [Unknown]
  - Sepsis [Unknown]
  - Hepatitis [Unknown]
  - Pneumothorax [Unknown]
  - Diabetes mellitus [Unknown]
  - Insomnia [Unknown]
  - Acute respiratory distress syndrome [Unknown]
  - Vision blurred [Unknown]
  - Gastritis [Unknown]
  - Melaena [Unknown]
  - Intervertebral disc protrusion [Unknown]
  - Spinal disorder [Unknown]
  - Anaemia [Unknown]
  - Urticaria [Unknown]
  - Burning sensation [Unknown]
  - Deafness [Unknown]
  - Hypogonadism [Unknown]
  - Abdominal pain [Unknown]
  - Stevens-Johnson syndrome [Unknown]
  - Osteitis deformans [Unknown]
  - Oropharyngeal plaque [Unknown]
  - Sinus disorder [Unknown]
  - Local swelling [Unknown]
  - Fall [Unknown]
  - Amnesia [Unknown]
  - Abdominal distension [Unknown]
  - Pancreatic duct dilatation [Unknown]
  - Pancreatic calcification [Unknown]
  - Lymphadenopathy [Unknown]
  - Hepatic lesion [Unknown]
  - Hepatic steatosis [Unknown]
  - Foot fracture [Unknown]
  - Granuloma annulare [Unknown]
  - Seborrhoeic keratosis [Unknown]
  - Acute respiratory failure [Unknown]
  - Hypoxia [Unknown]
  - Renal failure acute [Unknown]
  - Hepatic failure [Unknown]
  - Emphysema [Unknown]
  - Pulmonary mass [Unknown]
  - Pneumomediastinum [Unknown]
  - Lung infiltration [Unknown]
  - Hepatic cyst [Unknown]
  - Leukocytosis [Unknown]
  - Tubulointerstitial nephritis [Unknown]
  - Pernicious anaemia [Unknown]
  - Renal cyst [Unknown]
  - Candida infection [Unknown]
  - Aortic arteriosclerosis [Unknown]
  - Aortic calcification [Unknown]
  - Plasma cell leukaemia [Unknown]
  - Second primary malignancy [Unknown]
  - Lethargy [Unknown]
  - Rash [Recovered/Resolved]
  - Tachypnoea [Unknown]
  - Diarrhoea [Recovered/Resolved]
  - Suicidal ideation [Unknown]
  - Constipation [Unknown]
  - Bone pain [Unknown]
  - Nausea [Recovering/Resolving]
  - Pancreatic disorder [Unknown]
  - Transaminases increased [Unknown]
  - Pancreatitis chronic [Recovering/Resolving]
  - Pancreatic atrophy [Unknown]
  - Pericardial effusion [Unknown]
  - Pleural effusion [Unknown]
  - Atelectasis [Unknown]
  - Obstruction gastric [Unknown]
  - Multi-organ failure [Unknown]
  - Pancreatic duct obstruction [Unknown]
  - Hypogammaglobulinaemia [Unknown]
  - Haematuria [Unknown]
  - Confusional state [Unknown]
  - Hallucination, visual [Unknown]
  - Oesophagitis [Unknown]
  - Gastrointestinal oedema [Unknown]
  - Hypocalcaemia [Recovered/Resolved]
  - Hypokalaemia [Unknown]
  - Tooth loss [Unknown]
  - Systemic inflammatory response syndrome [Unknown]
  - Cardiac failure [Unknown]
  - Pancreatolithiasis [Unknown]
  - Atrial fibrillation [Unknown]
  - Bundle branch block left [Unknown]
  - Metabolic acidosis [Unknown]
  - Rhabdomyolysis [Unknown]
  - Osteosclerosis [Unknown]
  - Cardiac failure congestive [Unknown]
  - Ascites [Unknown]
  - Ventricular hypokinesia [Unknown]
  - Left atrial dilatation [Unknown]
  - Tricuspid valve incompetence [Unknown]
  - Right ventricular systolic pressure increased [Unknown]
  - Chest pain [Unknown]
  - Cholelithiasis [Unknown]
  - Obesity [Unknown]
  - Abdominal rigidity [Unknown]
  - Decreased appetite [Unknown]
  - Asthenia [Unknown]
  - Vomiting [Unknown]
  - Major depression [Unknown]
  - Malnutrition [Recovering/Resolving]
  - Upper gastrointestinal haemorrhage [Unknown]
  - Pelvic fluid collection [Unknown]
  - Sinus tachycardia [Unknown]
  - Hypotension [Unknown]
  - Weight decreased [Unknown]
  - Fatigue [Unknown]
  - Pruritus [Unknown]
  - Pleural fibrosis [Unknown]
  - Cerebral haemangioma [Unknown]
  - Bladder disorder [Unknown]
  - Mesenteric artery thrombosis [Unknown]
  - Peripheral vascular disorder [Unknown]
  - Encephalopathy [Unknown]
  - Pancreatic insufficiency [Unknown]
  - Delusion [Unknown]
